FAERS Safety Report 21143683 (Version 1)
Quarter: 2022Q3

REPORT INFORMATION
  Report Type: Spontaneous
  Country: US (occurrence: None)
  Receive Date: 20220728
  Receipt Date: 20220728
  Transmission Date: 20221026
  Serious: No
  Sender: FDA-Public Use
  Company Number: None

PATIENT
  Age: 70 Year
  Sex: Female
  Weight: 74.25 kg

DRUGS (13)
  1. EZETIMIBE [Suspect]
     Active Substance: EZETIMIBE
     Indication: Blood triglycerides increased
     Dosage: OTHER QUANTITY : 90 TABLET(S);?FREQUENCY : TWICE A DAY;?
     Route: 048
     Dates: start: 20220602, end: 20220728
  2. BYSTOLIC [Concomitant]
     Active Substance: NEBIVOLOL HYDROCHLORIDE
  3. EDARBI [Concomitant]
     Active Substance: AZILSARTAN KAMEDOXOMIL
  4. SPIRONOLACTONE [Concomitant]
     Active Substance: SPIRONOLACTONE
  5. AMLODIPINE [Concomitant]
     Active Substance: AMLODIPINE BESYLATE
  6. ESCITALOPRAM [Concomitant]
     Active Substance: ESCITALOPRAM OXALATE
  7. BRILINTA [Concomitant]
     Active Substance: TICAGRELOR
  8. ASPIRIN [Concomitant]
     Active Substance: ASPIRIN
  9. VASCEPA [Concomitant]
     Active Substance: ICOSAPENT ETHYL
  10. B-100 [Concomitant]
  11. VITAMIN D3 [Concomitant]
     Active Substance: CHOLECALCIFEROL
  12. THERACRAN [Concomitant]
  13. MULTI [Concomitant]

REACTIONS (4)
  - Tendon pain [None]
  - Pain in extremity [None]
  - Gait disturbance [None]
  - Gait disturbance [None]

NARRATIVE: CASE EVENT DATE: 20220726
